FAERS Safety Report 7918134-3 (Version None)
Quarter: 2011Q4

REPORT INFORMATION
  Report Type: 
  Country: None (occurrence: None)
  Receive Date: 20111116
  Receipt Date: 20110812
  Transmission Date: 20120403
  Serious: No
  Sender: FDA-Public Use
  Company Number: US-BAYER-2011-074425

PATIENT
  Sex: Female
  Weight: 104 kg

DRUGS (1)
  1. ALEVE (CAPLET) [Suspect]
     Indication: PAIN IN EXTREMITY
     Dosage: 5 DF, PRN
     Route: 048
     Dates: start: 20110809, end: 20110809

REACTIONS (1)
  - NO ADVERSE EVENT [None]
